FAERS Safety Report 17096989 (Version 1)
Quarter: 2019Q4

REPORT INFORMATION
  Report Type: Spontaneous
  Country: US (occurrence: US)
  Receive Date: 20191102
  Receipt Date: 20191102
  Transmission Date: 20200122
  Serious: Yes (Death, Hospitalization)
  Sender: FDA-Public Use
  Company Number: None

PATIENT
  Age: 25 Year
  Sex: Female
  Weight: 160 kg

DRUGS (6)
  1. DAUNORUBICIN [Suspect]
     Active Substance: DAUNORUBICIN
     Dates: end: 20191025
  2. DEXAMETHASONE. [Suspect]
     Active Substance: DEXAMETHASONE
     Dates: end: 20191029
  3. METHOTREXATE. [Suspect]
     Active Substance: METHOTREXATE
     Dates: end: 20191018
  4. CYTARABINE. [Suspect]
     Active Substance: CYTARABINE
     Dates: end: 20191011
  5. VINCRISTINE SULFATE. [Suspect]
     Active Substance: VINCRISTINE SULFATE
     Dates: end: 20191025
  6. ONCASPAR [Suspect]
     Active Substance: PEGASPARGASE
     Dates: end: 20191014

REACTIONS (16)
  - Cognitive disorder [None]
  - Renal replacement therapy [None]
  - Hypotension [None]
  - Heart rate increased [None]
  - Respiratory disorder [None]
  - Ventricular tachycardia [None]
  - Mental status changes [None]
  - Renal impairment [None]
  - Oxygen saturation decreased [None]
  - Mydriasis [None]
  - Ammonia increased [None]
  - Ventricular fibrillation [None]
  - Hepatic encephalopathy [None]
  - Neutropenia [None]
  - Coma scale abnormal [None]
  - General physical health deterioration [None]

NARRATIVE: CASE EVENT DATE: 20191028
